FAERS Safety Report 12578708 (Version 1)
Quarter: 2016Q3

REPORT INFORMATION
  Report Type: Spontaneous
  Country: US (occurrence: None)
  Receive Date: 20160720
  Receipt Date: 20160720
  Transmission Date: 20161109
  Serious: No
  Sender: FDA-Public Use
  Company Number: None

PATIENT
  Age: 60 Year
  Sex: Female

DRUGS (1)
  1. METHOTREXATE 25MG/ML APP [Suspect]
     Active Substance: METHOTREXATE SODIUM
     Route: 058
     Dates: start: 20160307

REACTIONS (3)
  - Sputum abnormal [None]
  - Nasal dryness [None]
  - Aphonia [None]

NARRATIVE: CASE EVENT DATE: 20160615
